FAERS Safety Report 25573557 (Version 1)
Quarter: 2025Q3

REPORT INFORMATION
  Report Type: Spontaneous
  Country: EU (occurrence: None)
  Receive Date: 20250717
  Receipt Date: 20250717
  Transmission Date: 20251020
  Serious: Yes (Disabling)
  Sender: FDA-CTU
  Company Number: None

PATIENT
  Age: 45 Year
  Sex: Female
  Weight: 57 kg

DRUGS (1)
  1. ESCITALOPRAM [Suspect]
     Active Substance: ESCITALOPRAM OXALATE
     Indication: Anxiety

REACTIONS (8)
  - Serotonin syndrome [None]
  - Hypomania [None]
  - Insomnia [None]
  - Weight decreased [None]
  - Withdrawal syndrome [None]
  - Loss of employment [None]
  - General physical health deterioration [None]
  - Social problem [None]

NARRATIVE: CASE EVENT DATE: 20230601
